FAERS Safety Report 25977286 (Version 1)
Quarter: 2025Q4

REPORT INFORMATION
  Report Type: Spontaneous
  Country: CA (occurrence: CA)
  Receive Date: 20251030
  Receipt Date: 20251030
  Transmission Date: 20260118
  Serious: Yes (Other)
  Sender: INTERCEPT PHARMACEUTICALS
  Company Number: CA-ADVANZ PHARMA-202408007129

PATIENT
  Age: 55 Year
  Sex: Female

DRUGS (4)
  1. OCALIVA [Suspect]
     Active Substance: OBETICHOLIC ACID
     Indication: Primary biliary cholangitis
     Dosage: 5 MG, QD (OCALIVA) 1/2 HOUR BEFORE BREAKFAST
     Dates: start: 20240823
  2. OCALIVA [Suspect]
     Active Substance: OBETICHOLIC ACID
     Dosage: 10 MG, QD (OCALIVA) TAKING HALF AN HOUR BEFORE BREAKFAST
  3. URSODIOL [Concomitant]
     Active Substance: URSODIOL
     Indication: Product used for unknown indication
     Dosage: 1000 MG, QD  (DAILY)
     Dates: start: 20160101
  4. URSODIOL [Concomitant]
     Active Substance: URSODIOL
     Dosage: 1000 MG (DAILY)
     Dates: start: 2016

REACTIONS (6)
  - Coeliac disease [Unknown]
  - Joint stiffness [Unknown]
  - Blister [Recovered/Resolved]
  - Nausea [Recovered/Resolved]
  - Headache [Recovered/Resolved]
  - Pruritus [Unknown]

NARRATIVE: CASE EVENT DATE: 20240823
